FAERS Safety Report 8888956 (Version 1)
Quarter: 2012Q4

REPORT INFORMATION
  Report Type: 
  Country: HN (occurrence: HN)
  Receive Date: 20121106
  Receipt Date: 20121106
  Transmission Date: 20130627
  Serious: Yes (Death)
  Sender: FDA-Public Use
  Company Number: PHHY2012HN101121

PATIENT
  Sex: Male

DRUGS (1)
  1. GLIVEC [Suspect]
     Indication: CHRONIC MYELOID LEUKAEMIA
     Dosage: 400 mg, UNK
     Dates: start: 20100420

REACTIONS (3)
  - Cerebral haemorrhage [Fatal]
  - Thrombocytopenia [Fatal]
  - Pneumonia [Fatal]
